FAERS Safety Report 4918642-3 (Version None)
Quarter: 2006Q1

REPORT INFORMATION
  Report Type: 
  Country: None (occurrence: None)
  Receive Date: 20060216
  Receipt Date: 20060203
  Transmission Date: 20060701
  Serious: Yes (Other)
  Sender: FDA-Public Use
  Company Number: 2006018016

PATIENT
  Sex: Male

DRUGS (5)
  1. VIAGRA [Suspect]
     Indication: ERECTILE DYSFUNCTION
     Dosage: 100 MG (100 MG, AS NECESSARY) ORAL
     Route: 048
  2. XANAX [Suspect]
     Indication: ANXIETY
  3. XANAX [Suspect]
     Indication: SLEEP DISORDER
  4. OXYCONTIN [Suspect]
     Indication: ILL-DEFINED DISORDER
  5. METFORMIN [Concomitant]

REACTIONS (11)
  - ANOREXIA [None]
  - ANXIETY [None]
  - DRUG ABUSER [None]
  - DRUG DEPENDENCE [None]
  - DRUG INEFFECTIVE [None]
  - ILL-DEFINED DISORDER [None]
  - LOSS OF LIBIDO [None]
  - MARITAL PROBLEM [None]
  - SELF-MEDICATION [None]
  - SLEEP DISORDER [None]
  - WEIGHT DECREASED [None]
